FAERS Safety Report 9483113 (Version 3)
Quarter: 2013Q4

REPORT INFORMATION
  Report Type: Spontaneous
  Country: US (occurrence: US)
  Receive Date: 20130828
  Receipt Date: 20131025
  Transmission Date: 20140711
  Serious: Yes (Other)
  Sender: FDA-Public Use
  Company Number: US-GILEAD-2013-0082115

PATIENT
  Age: 28 Year
  Sex: Female

DRUGS (2)
  1. CAYSTON [Suspect]
     Indication: PSEUDOMONAS INFECTION
     Dosage: 75 MG, UNK
     Route: 055
     Dates: start: 20130808, end: 20130821
  2. CAYSTON [Suspect]
     Indication: BRONCHIECTASIS

REACTIONS (4)
  - Pulmonary function test decreased [Recovered/Resolved]
  - Hypersensitivity [Recovered/Resolved]
  - Asthma [Recovered/Resolved]
  - Bronchial hyperreactivity [Unknown]
